FAERS Safety Report 9627000 (Version 4)
Quarter: 2014Q1

REPORT INFORMATION
  Report Type: Spontaneous
  Country: US (occurrence: US)
  Receive Date: 20131016
  Receipt Date: 20140307
  Transmission Date: 20141002
  Serious: Yes (Hospitalization)
  Sender: FDA-Public Use
  Company Number: US-SA-THYM-1003882

PATIENT
  Age: 24 Year
  Sex: Male
  Weight: 124 kg

DRUGS (27)
  1. THYMOGLOBULIN [Suspect]
     Indication: LIVER TRANSPLANT REJECTION
     Dosage: 200 MG, 5X/W (DAYS 1,2,3,5,7)
     Route: 042
     Dates: start: 20130620, end: 20130627
  2. THYMOGLOBULIN [Suspect]
     Indication: LIVER TRANSPLANT REJECTION
     Route: 065
  3. BACTRIM DS [Concomitant]
     Dosage: 960 MG (160 MG-800 MG), UNK
     Route: 048
  4. LOPRESSOR [Concomitant]
     Dosage: 25 MG, BID
     Route: 048
  5. PRILOSEC [Concomitant]
     Dosage: 40 MG, QD
     Route: 048
  6. CELLCEPT [Concomitant]
     Indication: TRANSPLANT REJECTION
     Dosage: (500 MG TABLET, 2 TABLETS, TWO TIMES A DAY)
     Route: 048
  7. PREDNISONE [Concomitant]
     Dosage: 10 MG, QD
     Route: 048
  8. PROGRAF [Concomitant]
     Indication: TRANSPLANT REJECTION
     Dosage: (1 MG CAPSULE,6 CAPSULES EVERY 12 HOURS)
     Route: 048
  9. VALCYTE [Concomitant]
     Dosage: (450 MG TABLET, 2 TABLETS DAILY)
     Route: 048
  10. TYLENOL [Concomitant]
     Indication: PREMEDICATION
     Dosage: UNK
  11. BENADRYL [Concomitant]
     Indication: PREMEDICATION
     Dosage: UNK
  12. ACETAMINOPHEN [Concomitant]
     Indication: PREMEDICATION
     Dates: start: 20130620, end: 20130627
  13. DIPHENHYDRAMINE [Concomitant]
     Indication: PREMEDICATION
     Route: 042
     Dates: start: 20130620, end: 20130627
  14. GENTAMICIN [Concomitant]
     Indication: ANTIBIOTIC PROPHYLAXIS
     Route: 048
     Dates: start: 20130620, end: 20130627
  15. INSULIN ASPART [Concomitant]
     Indication: HYPERGLYCAEMIA
     Dosage: DAILY DOSE: 19-24 SQ/DAY
     Route: 058
  16. INSULIN ASPART [Concomitant]
     Indication: DIABETES MELLITUS
     Dosage: DAILY DOSE: 19-24 SQ/DAY
     Route: 058
  17. NPH INSULIN [Concomitant]
     Indication: HYPERGLYCAEMIA
     Dosage: DAILY DOSE: 8-21UNITS SQ/DAY
     Route: 058
  18. NPH INSULIN [Concomitant]
     Indication: DIABETES MELLITUS
     Dosage: DAILY DOSE: 8-21UNITS SQ/DAY
     Route: 058
  19. METHYLPREDNISOLONE [Concomitant]
     Indication: PREMEDICATION
     Route: 042
     Dates: start: 20130620, end: 20130627
  20. METOPROLOL [Concomitant]
     Indication: HYPERTENSION
  21. MYCOPHENOLATE MOFETIL [Concomitant]
     Indication: IMMUNOSUPPRESSION
  22. NYSTATIN [Concomitant]
     Indication: PROPHYLAXIS
     Dosage: DAILY DOSE: 1 MILLION UNITS DOSE:1000000 UNIT(S)
     Route: 048
     Dates: start: 20130620, end: 20130627
  23. OMEPRAZOLE [Concomitant]
     Indication: GASTROOESOPHAGEAL REFLUX DISEASE
  24. BACTRIM [Concomitant]
     Indication: PROPHYLAXIS
  25. TACROLIMUS [Concomitant]
     Indication: IMMUNOSUPPRESSION
  26. VALGANCICLOVIR [Concomitant]
     Indication: ANTIVIRAL PROPHYLAXIS
  27. CORTICOSTEROID NOS [Concomitant]
     Indication: PREMEDICATION
     Dosage: UNK

REACTIONS (4)
  - Palmar-plantar erythrodysaesthesia syndrome [Recovered/Resolved]
  - Erythema [Recovered/Resolved]
  - Pain in jaw [Recovered/Resolved]
  - Ear pain [Recovered/Resolved]
